FAERS Safety Report 6007920-5 (Version None)
Quarter: 2008Q4

REPORT INFORMATION
  Report Type: 
  Country: None (occurrence: None)
  Receive Date: 20081217
  Receipt Date: 20080611
  Transmission Date: 20090506
  Serious: No
  Sender: FDA-Public Use
  Company Number: US-ASTRAZENECA-2008UW11679

PATIENT
  Age: 63 Year
  Sex: Female
  Weight: 59.4 kg

DRUGS (6)
  1. CRESTOR [Suspect]
     Indication: BLOOD CHOLESTEROL INCREASED
     Route: 048
     Dates: start: 20080501
  2. PLAVIX [Concomitant]
  3. NEXIUM [Concomitant]
  4. METOPROLOL TARTRATE [Concomitant]
  5. NEURONTIN [Concomitant]
  6. ANTIDEPRESSANT [Concomitant]

REACTIONS (2)
  - GLOSSODYNIA [None]
  - ORAL PAIN [None]
